FAERS Safety Report 8299084-2 (Version None)
Quarter: 2012Q2

REPORT INFORMATION
  Report Type: 
  Country: None (occurrence: None)
  Receive Date: 20120419
  Receipt Date: 20120411
  Transmission Date: 20120825
  Serious: Yes (Hospitalization, Other)
  Sender: FDA-Public Use
  Company Number: US-US-EMD SERONO, INC.-7125763

PATIENT
  Sex: Female

DRUGS (7)
  1. BACLOFEN [Concomitant]
     Indication: MUSCLE SPASTICITY
  2. PAXIL [Concomitant]
     Indication: DEPRESSION
  3. NEURONTIN [Concomitant]
     Indication: PARAESTHESIA
  4. REBIF [Suspect]
     Indication: MULTIPLE SCLEROSIS
     Route: 058
     Dates: start: 20100205
  5. REBIF [Suspect]
     Route: 058
     Dates: start: 20120401
  6. REBIF [Suspect]
     Route: 058
  7. OXYBUTYNIN [Concomitant]
     Indication: BLADDER DYSFUNCTION

REACTIONS (4)
  - WOUND HAEMORRHAGE [None]
  - HEADACHE [None]
  - BODY TEMPERATURE INCREASED [None]
  - BLOOD DISORDER [None]
